FAERS Safety Report 9701327 (Version 1)
Quarter: 2013Q4

REPORT INFORMATION
  Report Type: Spontaneous
  Country: US (occurrence: US)
  Receive Date: 20131121
  Receipt Date: 20131121
  Transmission Date: 20140711
  Serious: Yes (Disabling)
  Sender: FDA-Public Use
  Company Number: US-GILEAD-2008-0016658

PATIENT
  Age: 47 Year
  Sex: Male

DRUGS (3)
  1. LETAIRIS [Suspect]
     Indication: PULMONARY HYPERTENSION
     Route: 048
     Dates: start: 20070924, end: 20071108
  2. REVATIO [Concomitant]
     Indication: PULMONARY HYPERTENSION
     Route: 048
     Dates: start: 2006
  3. COUMADIN [Concomitant]
     Indication: PULMONARY EMBOLISM
     Route: 048
     Dates: start: 2006

REACTIONS (3)
  - Headache [Recovered/Resolved]
  - Malaise [Recovered/Resolved]
  - Paranasal sinus discomfort [Recovered/Resolved]
